FAERS Safety Report 8410865 (Version 4)
Quarter: 2013Q1

REPORT INFORMATION
  Report Type: Spontaneous
  Country: US (occurrence: US)
  Receive Date: 20120217
  Receipt Date: 20130318
  Transmission Date: 20140127
  Serious: Yes (Other)
  Sender: FDA-Public Use
  Company Number: US-PFIZER INC-2012038117

PATIENT
  Age: 83 Year
  Sex: Male
  Weight: 69.39 kg

DRUGS (10)
  1. LYRICA [Suspect]
     Indication: NEURALGIA
     Dosage: 150 MG, 1X/DAY AT BED TIME
     Route: 048
     Dates: start: 20120210, end: 20120212
  2. IBUPROFEN [Suspect]
     Dosage: UNK
  3. MELOXICAM [Suspect]
     Dosage: 7.5 MG
  4. CARVEDILOL [Concomitant]
     Indication: HYPERTENSION
     Dosage: 6.25 MG, 2X/DAY
  5. SIMVASTATIN [Concomitant]
     Indication: BLOOD CHOLESTEROL INCREASED
     Dosage: 20 MG, DAILY
  6. GLYBURIDE [Concomitant]
     Indication: DIABETES MELLITUS
     Dosage: 5 MG, DAILY
  7. ACETYLSALICYLIC ACID [Concomitant]
     Indication: CARDIAC DISORDER
     Dosage: 81 MG, 2X/DAY
  8. XALATAN [Concomitant]
     Dosage: UNK
  9. CO-Q-10 [Concomitant]
     Dosage: UNK
  10. FENTANYL [Concomitant]
     Indication: NEUROPATHY PERIPHERAL
     Dosage: UNK

REACTIONS (11)
  - Cerebrovascular accident [Unknown]
  - Blindness transient [Recovered/Resolved]
  - Visual impairment [Not Recovered/Not Resolved]
  - Diplopia [Recovered/Resolved]
  - Intraocular pressure increased [Unknown]
  - Heterophoria [Unknown]
  - Pupillary reflex impaired [Unknown]
  - Corneal dystrophy [Unknown]
  - Vision blurred [Unknown]
  - Dizziness [Recovered/Resolved]
  - Gastritis [Unknown]
